FAERS Safety Report 9301538 (Version 2)
Quarter: 2013Q1

REPORT INFORMATION
  Report Type: Spontaneous
  Country: US (occurrence: None)
  Receive Date: 20121121
  Receipt Date: 20121228
  Transmission Date: 20140127
  Serious: Yes (Hospitalization, Other)
  Sender: FDA-Public Use
  Company Number: JPI-P-025965

PATIENT
  Age: 18 Year
  Sex: Female
  Weight: 47.17 kg

DRUGS (4)
  1. XYREM (500 MILLIGRAM/MILLILITERS, SOLUTION)(SODIUM OXYBATE) [Suspect]
     Indication: CATAPLEXY
     Dosage: (1.5 GM, 2 IN 1 D)
     Route: 048
     Dates: start: 20120810, end: 2012
  2. CLONAZEPAM [Concomitant]
  3. AMITRIPTYLINE [Concomitant]
  4. ARMODAFINIL [Concomitant]

REACTIONS (19)
  - Hallucinations, mixed [None]
  - Vomiting [None]
  - Nausea [None]
  - Memory impairment [None]
  - Cataplexy [None]
  - Sedation [None]
  - Fatigue [None]
  - Somnolence [None]
  - Somnolence [None]
  - Unresponsive to stimuli [None]
  - Weight decreased [None]
  - Amnesia [None]
  - Convulsion [None]
  - Headache [None]
  - Dizziness [None]
  - Hangover [None]
  - Feeling abnormal [None]
  - Initial insomnia [None]
  - Somnambulism [None]
